FAERS Safety Report 5289238-1 (Version None)
Quarter: 2007Q1

REPORT INFORMATION
  Report Type: 
  Country: None (occurrence: None)
  Receive Date: 20070126
  Receipt Date: 20060710
  Transmission Date: 20070707
  Serious: Yes (Hospitalization)
  Sender: FDA-Public Use
  Company Number: 06P-163-0337813-00

PATIENT
  Age: 5 Year
  Sex: Male
  Weight: 23.1334 kg

DRUGS (1)
  1. OMNICEF [Suspect]
     Indication: PHARYNGITIS STREPTOCOCCAL
     Dosage: 125MG/5ML, 2 IN 1 D, PER ORAL
     Route: 048
     Dates: start: 20060606, end: 20060616

REACTIONS (2)
  - CLOSTRIDIAL INFECTION [None]
  - VOMITING [None]
